FAERS Safety Report 7047550-X (Version None)
Quarter: 2010Q4

REPORT INFORMATION
  Report Type: 
  Country: None (occurrence: None)
  Receive Date: 20101015
  Receipt Date: 20101007
  Transmission Date: 20110411
  Serious: Yes (Other)
  Sender: FDA-Public Use
  Company Number: JP-PFIZER INC-2010127127

PATIENT

DRUGS (4)
  1. DOXAZOSIN MESYLATE [Suspect]
     Dosage: UNK
     Route: 048
  2. AMLODIPINE BESYLATE [Suspect]
     Dosage: UNK
  3. HYDROCHLOROTHIAZIDE [Suspect]
     Dosage: UNK
  4. DIOVAN [Suspect]
     Dosage: UNK

REACTIONS (1)
  - BLOOD CALCIUM DECREASED [None]
